FAERS Safety Report 7852666-1 (Version None)
Quarter: 2011Q4

REPORT INFORMATION
  Report Type: 
  Country: None (occurrence: None)
  Receive Date: 20111026
  Receipt Date: 20111025
  Transmission Date: 20120403
  Serious: Yes (Hospitalization, Other)
  Sender: FDA-Public Use
  Company Number: US-GLAXOSMITHKLINE-R0019245A

PATIENT
  Age: 57 Year
  Sex: Female

DRUGS (5)
  1. ALENDRONATE SODIUM [Suspect]
     Indication: OSTEOPENIA
     Dosage: 70MG PER DAY
     Route: 048
     Dates: start: 20100201
  2. WELLBUTRIN SR [Suspect]
     Indication: DEPRESSION
     Dosage: 150MG PER DAY
     Route: 048
     Dates: start: 20090101
  3. BLINDED VACCINE [Suspect]
     Route: 030
     Dates: start: 20101005, end: 20101005
  4. VYTORIN [Suspect]
     Indication: DYSLIPIDAEMIA
     Route: 048
     Dates: start: 20000101
  5. CALCIUM CARBONATE [Suspect]
     Indication: OSTEOPENIA
     Dosage: 600MG PER DAY
     Route: 048
     Dates: start: 20050101

REACTIONS (1)
  - DIVERTICULITIS [None]
